FAERS Safety Report 9692705 (Version 2)
Quarter: 2013Q4

REPORT INFORMATION
  Report Type: Spontaneous
  Country: TN (occurrence: TN)
  Receive Date: 20131118
  Receipt Date: 20131122
  Transmission Date: 20140711
  Serious: Yes (Disabling)
  Sender: FDA-Public Use
  Company Number: PHHY2013TN130917

PATIENT
  Age: 57 Year
  Sex: Male

DRUGS (1)
  1. GLIVEC [Suspect]
     Indication: CHRONIC MYELOID LEUKAEMIA
     Dosage: 400 MG, QD
     Route: 048
     Dates: start: 20020729

REACTIONS (4)
  - Visual field defect [Not Recovered/Not Resolved]
  - Blindness [Not Recovered/Not Resolved]
  - Visual field defect [Unknown]
  - Visual acuity reduced [Unknown]
